FAERS Safety Report 9222959 (Version 3)
Quarter: 2015Q2

REPORT INFORMATION
  Report Type: Report from Study
  Country: GB (occurrence: GB)
  Receive Date: 20130410
  Receipt Date: 20150514
  Transmission Date: 20150821
  Serious: Yes (Hospitalization)
  Sender: FDA-Public Use
  Company Number: GB-ROCHE-1212133

PATIENT
  Age: 56 Year
  Sex: Male
  Weight: 88.7 kg

DRUGS (16)
  1. EPIRUBICIN [Suspect]
     Active Substance: EPIRUBICIN
     Indication: GASTRIC CANCER
     Dosage: 01/MAR/2013, LAST DOSE ADMINISTERED.
     Route: 042
     Dates: start: 20130118
  2. LANSOPRAZOLE. [Concomitant]
     Active Substance: LANSOPRAZOLE
     Route: 048
  3. FRESUBIN LIQUIDE [Concomitant]
     Route: 048
  4. ALENDRONIC ACID [Concomitant]
     Active Substance: ALENDRONIC ACID
     Route: 048
  5. SAXAGLIPTIN [Concomitant]
     Active Substance: SAXAGLIPTIN
  6. PERINDOPRIL TERT-BUTYLAMINE [Concomitant]
     Route: 048
  7. FOLIC ACID. [Concomitant]
     Active Substance: FOLIC ACID
     Route: 048
  8. BEVACIZUMAB [Suspect]
     Active Substance: BEVACIZUMAB
     Indication: GASTRIC CANCER
     Dosage: 08/FEB/2013, LAST DOSE ADMINISTERED
     Route: 042
     Dates: start: 20130118
  9. PARACETAMOL [Concomitant]
     Active Substance: ACETAMINOPHEN
     Route: 048
  10. CALCEOS [Concomitant]
     Active Substance: CALCIUM CARBONATE\CHOLECALCIFEROL
     Route: 048
  11. QUININE SULFATE. [Concomitant]
     Active Substance: QUININE SULFATE
     Route: 048
  12. CISPLATIN. [Suspect]
     Active Substance: CISPLATIN
     Indication: GASTRIC CANCER
     Dosage: 01/MAR/2013, LAST DOSE ADMINISTERED.
     Route: 042
     Dates: start: 20130118
  13. CITALOPRAM [Concomitant]
     Active Substance: CITALOPRAM HYDROBROMIDE
     Route: 065
  14. ASPIRIN. [Concomitant]
     Active Substance: ASPIRIN
     Route: 048
  15. CAPECITABINE. [Suspect]
     Active Substance: CAPECITABINE
     Indication: GASTRIC CANCER
     Dosage: 22/MAR/2013, LAST DOSE ADMINISTERED.
     Route: 048
     Dates: start: 20130118
  16. SIMVASTATIN. [Concomitant]
     Active Substance: SIMVASTATIN
     Route: 048

REACTIONS (2)
  - Gastrointestinal anastomotic leak [Recovered/Resolved]
  - Dysphagia [Unknown]

NARRATIVE: CASE EVENT DATE: 20130220
